FAERS Safety Report 24693497 (Version 3)
Quarter: 2024Q4

REPORT INFORMATION
  Report Type: Spontaneous
  Country: IT (occurrence: IT)
  Receive Date: 20241203
  Receipt Date: 20241218
  Transmission Date: 20250115
  Serious: Yes (Other)
  Sender: AUROBINDO
  Company Number: IT-MLMSERVICE-20241121-PI265652-00202-1

PATIENT
  Age: 8 Year
  Sex: Female
  Weight: 37.4 kg

DRUGS (8)
  1. LINEZOLID [Suspect]
     Active Substance: LINEZOLID
     Indication: Antibiotic therapy
     Dosage: 10 MILLIGRAM/KILOGRAM, 3 TIMES A DAY
     Route: 048
  2. LINEZOLID [Suspect]
     Active Substance: LINEZOLID
     Indication: Gradenigo^s syndrome
  3. CEFTRIAXONE [Suspect]
     Active Substance: CEFTRIAXONE
     Indication: Antibiotic therapy
     Dosage: UNK
     Route: 042
  4. CEFTRIAXONE [Suspect]
     Active Substance: CEFTRIAXONE
     Indication: Gradenigo^s syndrome
  5. BETAMETHASONE [Suspect]
     Active Substance: BETAMETHASONE
     Indication: Steroid therapy
     Dosage: UNK
     Route: 042
  6. BETAMETHASONE [Suspect]
     Active Substance: BETAMETHASONE
     Indication: Gradenigo^s syndrome
  7. CEFOTAXIME [Concomitant]
     Active Substance: CEFOTAXIME SODIUM
     Indication: Antibiotic therapy
     Dosage: UNK
     Route: 065
  8. DEXAMETHASONE [Concomitant]
     Active Substance: DEXAMETHASONE
     Indication: Steroid therapy
     Dosage: UNK
     Route: 065

REACTIONS (2)
  - Electrocardiogram QT prolonged [Recovered/Resolved]
  - Drug ineffective [Unknown]
